FAERS Safety Report 14264421 (Version 2)
Quarter: 2021Q3

REPORT INFORMATION
  Report Type: Spontaneous
  Country: US (occurrence: US)
  Receive Date: 20171208
  Receipt Date: 20210817
  Transmission Date: 20211014
  Serious: No
  Sender: FDA-Public Use
  Company Number: US-JAZZ-2017-US-011905

PATIENT
  Age: 61 Year
  Sex: Female

DRUGS (34)
  1. ASTEPRO [Concomitant]
     Active Substance: AZELASTINE HYDROCHLORIDE
  2. PROAIR HFA [Concomitant]
     Active Substance: ALBUTEROL SULFATE
  3. CELEBREX [Concomitant]
     Active Substance: CELECOXIB
  4. DOXYCYCLINE. [Concomitant]
     Active Substance: DOXYCYCLINE
  5. VITAMIN B12 [Concomitant]
     Active Substance: CYANOCOBALAMIN
  6. DULOXETINE. [Suspect]
     Active Substance: DULOXETINE
     Indication: PRODUCT USED FOR UNKNOWN INDICATION
     Dosage: UNK
     Dates: start: 201704
  7. FLOVENT HFA [Concomitant]
     Active Substance: FLUTICASONE PROPIONATE
  8. NORCO [Concomitant]
     Active Substance: ACETAMINOPHEN\HYDROCODONE BITARTRATE
  9. WARFARIN SODIUM. [Concomitant]
     Active Substance: WARFARIN SODIUM
  10. MEDROL [Concomitant]
     Active Substance: METHYLPREDNISOLONE
  11. ROBAXIN [Concomitant]
     Active Substance: METHOCARBAMOL
  12. VICODIN [Concomitant]
     Active Substance: ACETAMINOPHEN\HYDROCODONE BITARTRATE
     Indication: PAIN
  13. LORATADINE. [Concomitant]
     Active Substance: LORATADINE
  14. MIRALAX [Concomitant]
     Active Substance: POLYETHYLENE GLYCOL 3350
  15. VITAMIN D [Concomitant]
     Active Substance: VITAMIN D NOS
  16. FLUTICASONE. [Concomitant]
     Active Substance: FLUTICASONE
  17. FIORICET [Concomitant]
     Active Substance: ACETAMINOPHEN\BUTALBITAL\CAFFEINE
  18. PERCOCET [Concomitant]
     Active Substance: ACETAMINOPHEN\OXYCODONE HYDROCHLORIDE
  19. XYREM [Suspect]
     Active Substance: SODIUM OXYBATE
     Indication: NARCOLEPSY
     Dosage: UNK
     Route: 048
     Dates: start: 200411, end: 200509
  20. SINGULAIR [Concomitant]
     Active Substance: MONTELUKAST SODIUM
  21. CALCIUM [Concomitant]
     Active Substance: CALCIUM
  22. ALIGN [Concomitant]
     Active Substance: BIFIDOBACTERIUM LONGUM SUBSP. INFANTIS
  23. XYREM [Suspect]
     Active Substance: SODIUM OXYBATE
     Indication: CATAPLEXY
     Dosage: 4.5 GRAM, BID
     Route: 048
     Dates: start: 200509
  24. PREVACID [Concomitant]
     Active Substance: LANSOPRAZOLE
  25. BENEFIBER [Concomitant]
     Active Substance: STARCH, WHEAT
  26. XYREM [Suspect]
     Active Substance: SODIUM OXYBATE
     Indication: SLEEP DISORDER
     Dosage: 2.25 GRAM, BID
     Route: 048
     Dates: start: 200410, end: 200411
  27. TOPAMAX [Concomitant]
     Active Substance: TOPIRAMATE
  28. VITAMIN B2 [Concomitant]
     Active Substance: RIBOFLAVIN
  29. XARELTO [Concomitant]
     Active Substance: RIVAROXABAN
  30. GABAPENTIN. [Concomitant]
     Active Substance: GABAPENTIN
  31. QVAR [Concomitant]
     Active Substance: BECLOMETHASONE DIPROPIONATE
  32. PROCHLORPERAZINE. [Concomitant]
     Active Substance: PROCHLORPERAZINE
  33. MAGNESIUM OXIDE. [Concomitant]
     Active Substance: MAGNESIUM OXIDE
  34. CYMBALTA [Concomitant]
     Active Substance: DULOXETINE HYDROCHLORIDE
     Dosage: UNK

REACTIONS (6)
  - Blood cholesterol increased [Recovered/Resolved]
  - Intentional product use issue [Unknown]
  - Condition aggravated [Unknown]
  - Snoring [Unknown]
  - Somnolence [Unknown]
  - Intervertebral disc degeneration [Not Recovered/Not Resolved]

NARRATIVE: CASE EVENT DATE: 201704
